FAERS Safety Report 10643257 (Version 1)
Quarter: 2014Q4

REPORT INFORMATION
  Report Type: Spontaneous
  Country: US (occurrence: None)
  Receive Date: 20141128
  Receipt Date: 20141128
  Transmission Date: 20150529
  Serious: Yes (Life-Threatening, Hospitalization)
  Sender: FDA-Public Use
  Company Number: 1300655

PATIENT
  Age: 4 Year
  Sex: Male

DRUGS (3)
  1. TAMIFLU [Suspect]
     Active Substance: OSELTAMIVIR PHOSPHATE
     Indication: INFLUENZA
  2. CEFDINIR (CEFDINIR) [Concomitant]
     Active Substance: CEFDINIR
  3. OMNICEF (UNITED STATES) (CEFDINIR) [Concomitant]

REACTIONS (2)
  - Urticaria [None]
  - Hypersensitivity [None]

NARRATIVE: CASE EVENT DATE: 20130222
